FAERS Safety Report 18626768 (Version 1)
Quarter: 2020Q4

REPORT INFORMATION
  Report Type: Spontaneous
  Country: GB (occurrence: GB)
  Receive Date: 20201217
  Receipt Date: 20201217
  Transmission Date: 20210114
  Serious: Yes (Other)
  Sender: FDA-Public Use
  Company Number: GB-MICRO LABS LIMITED-ML2020-03682

PATIENT
  Age: 56 Year
  Sex: Female
  Weight: 96 kg

DRUGS (5)
  1. AMLODIPINE [Concomitant]
     Active Substance: AMLODIPINE BESYLATE
     Dates: start: 20191203
  2. CLENIL MODULITE [Concomitant]
     Active Substance: BECLOMETHASONE DIPROPIONATE
     Dosage: PUFFS. TO BE USED REGULARLY DURI...
     Dates: start: 20200911
  3. CANDESARTAN. [Concomitant]
     Active Substance: CANDESARTAN
     Dosage: AT NIGHT
     Dates: start: 20191203
  4. SALBUTAMOL [Concomitant]
     Active Substance: ALBUTEROL
     Indication: DYSPNOEA
     Dosage: AND AS REQUIRED. PUFFS.
     Dates: start: 20200911, end: 20201009
  5. SIMVASTATIN. [Suspect]
     Active Substance: SIMVASTATIN
     Dates: start: 20201120

REACTIONS (1)
  - Pain in extremity [Unknown]

NARRATIVE: CASE EVENT DATE: 20201120
